FAERS Safety Report 12686516 (Version 1)
Quarter: 2016Q3

REPORT INFORMATION
  Report Type: Spontaneous
  Country: NO (occurrence: NO)
  Receive Date: 20160825
  Receipt Date: 20160825
  Transmission Date: 20161109
  Serious: Yes (Death)
  Sender: FDA-Public Use
  Company Number: NO-MYLANLABS-2016M1034788

PATIENT

DRUGS (16)
  1. AKINETON [Concomitant]
     Active Substance: BIPERIDEN HYDROCHLORIDE
     Dosage: 2 MG, BID
     Route: 048
  2. ZOPICLONE [Concomitant]
     Active Substance: ZOPICLONE
     Dosage: 7.5 MG, UNK
     Route: 048
  3. BURINEX [Concomitant]
     Active Substance: BUMETANIDE
     Dosage: 1 MG, QD
     Route: 048
  4. KALEORID [Concomitant]
     Active Substance: POTASSIUM CHLORIDE
     Dosage: UNK
     Route: 048
  5. CENTYL MITE MED KALIUMKLORID [Concomitant]
     Dosage: 1 DF, QD (2,5 MG BENDROFLUMETHIAZIDE, 573 MG POTASSIUM CHLORIDE)
  6. PANODIL [Concomitant]
     Active Substance: ACETAMINOPHEN
     Dosage: 1000 MG, TID
     Route: 048
  7. IBUX [Concomitant]
     Active Substance: IBUPROFEN
     Dosage: 400 MG, UNK (1 TABLET TWICE DAILY AS NEEDED)
     Route: 048
  8. FERROMAX [Concomitant]
     Dosage: 65 MG, QD
     Route: 048
  9. DUPHALAC [Concomitant]
     Active Substance: LACTULOSE
     Dosage: 30 MG, BID
     Route: 048
  10. LETROZOLE. [Concomitant]
     Active Substance: LETROZOLE
     Dosage: 2.5 MG, QD
     Route: 048
  11. LEVAXIN [Concomitant]
     Active Substance: LEVOTHYROXINE SODIUM
     Dosage: 50 ?G, QD
     Route: 048
  12. PARALGIN FORTE                     /00116401/ [Concomitant]
     Dosage: UNK (UP TO 3 TABLETS AS NEEDED)
     Route: 048
  13. OLANZAPINE. [Suspect]
     Active Substance: OLANZAPINE
     Indication: BIPOLAR DISORDER
     Dosage: 20 MG, QD
     Route: 048
  14. VALLERGAN [Concomitant]
     Active Substance: TRIMEPRAZINE
     Dosage: 40 MG, QD
     Route: 048
  15. SOBRIL [Concomitant]
     Active Substance: OXAZEPAM
     Dosage: 10 MG, BID
     Route: 048
  16. ORFIRIL [Concomitant]
     Active Substance: VALPROIC ACID
     Dosage: UNK (750 MG IN THE MORNING, 900 MG IN THE AFTERNOON.)
     Route: 048

REACTIONS (1)
  - Toxicity to various agents [Fatal]
